FAERS Safety Report 24817307 (Version 1)
Quarter: 2025Q1

REPORT INFORMATION
  Report Type: Spontaneous
  Country: GB (occurrence: GB)
  Receive Date: 20250108
  Receipt Date: 20250108
  Transmission Date: 20250408
  Serious: Yes (Disabling, Other)
  Sender: TEVA
  Company Number: None

PATIENT
  Age: 65 Year
  Sex: Male

DRUGS (1)
  1. LEVOTHYROXINE [Suspect]
     Active Substance: LEVOTHYROXINE
     Indication: Thyroiditis
     Route: 065

REACTIONS (4)
  - Medication error [Unknown]
  - Sinusitis [Recovering/Resolving]
  - Mental fatigue [Not Recovered/Not Resolved]
  - Hypotension [Recovering/Resolving]
